FAERS Safety Report 6124756-5 (Version None)
Quarter: 2009Q1

REPORT INFORMATION
  Report Type: 
  Country: None (occurrence: None)
  Receive Date: 20090319
  Receipt Date: 20090306
  Transmission Date: 20090719
  Serious: Yes (Other)
  Sender: FDA-Public Use
  Company Number: BR-PFIZER INC-2009180674

PATIENT

DRUGS (4)
  1. OLMETEC [Suspect]
     Dosage: 20/12.5 MG, 1X/DAY
     Route: 048
     Dates: start: 20090220, end: 20090306
  2. NORVASC [Suspect]
     Dosage: UNK
     Dates: start: 20090220, end: 20090306
  3. EUTHYROX [Concomitant]
     Dosage: UNK
     Dates: start: 20030101
  4. OMEPRAZOLE [Concomitant]
     Dosage: UNK
     Dates: start: 20030101

REACTIONS (2)
  - DRUG HYPERSENSITIVITY [None]
  - HYPERSENSITIVITY [None]
